FAERS Safety Report 8338976-2 (Version None)
Quarter: 2012Q2

REPORT INFORMATION
  Report Type: 
  Country: None (occurrence: None)
  Receive Date: 20120507
  Receipt Date: 20120427
  Transmission Date: 20120825
  Serious: No
  Sender: FDA-Public Use
  Company Number: US-BAYER-2012-043194

PATIENT
  Age: 42 Year
  Sex: Female
  Weight: 85.261 kg

DRUGS (2)
  1. ULTRAVIST 150 [Suspect]
     Indication: SPLENOMEGALY
     Dosage: 95 ML, ONCE
     Route: 042
     Dates: start: 20120427, end: 20120427
  2. ULTRAVIST 150 [Suspect]
     Indication: COMPUTERISED TOMOGRAM

REACTIONS (1)
  - URTICARIA [None]
